FAERS Safety Report 17339392 (Version 6)
Quarter: 2020Q2

REPORT INFORMATION
  Report Type: Report from Study
  Country: US (occurrence: US)
  Receive Date: 20200129
  Receipt Date: 20200506
  Transmission Date: 20200713
  Serious: Yes (Death, Hospitalization, Other)
  Sender: FDA-Public Use
  Company Number: US-ACTELION-A-US2019-198191

PATIENT
  Age: 50 Year
  Sex: Male
  Weight: 90.7 kg

DRUGS (5)
  1. ADEMPAS [Suspect]
     Active Substance: RIOCIGUAT
     Indication: PRODUCT USED FOR UNKNOWN INDICATION
     Dosage: 2 MG, TID
     Route: 065
  2. VELETRI [Suspect]
     Active Substance: EPOPROSTENOL
     Dosage: 90 NG/KG, PER MIN
     Route: 042
  3. VELETRI [Suspect]
     Active Substance: EPOPROSTENOL
     Indication: PULMONARY HYPERTENSION
     Dosage: 95 NG/KG, PER MIN
     Route: 042
     Dates: end: 20200116
  4. REMODULIN [Concomitant]
     Active Substance: TREPROSTINIL
     Dosage: UNK
  5. OPSUMIT [Suspect]
     Active Substance: MACITENTAN
     Indication: PULMONARY HYPERTENSION
     Dosage: 10 MG, QD
     Route: 048
     Dates: start: 20160325, end: 20200228

REACTIONS (28)
  - Weight increased [Unknown]
  - Therapy non-responder [Unknown]
  - Abdominal pain upper [Unknown]
  - Death [Fatal]
  - Peripheral swelling [Not Recovered/Not Resolved]
  - Pneumothorax [Unknown]
  - Condition aggravated [Unknown]
  - Rash [Unknown]
  - Angina pectoris [Unknown]
  - Dyspnoea [Not Recovered/Not Resolved]
  - Asthenia [Unknown]
  - Pulmonary arterial hypertension [Unknown]
  - Feeling abnormal [Unknown]
  - Diarrhoea [Unknown]
  - Therapy change [Unknown]
  - Dizziness [Not Recovered/Not Resolved]
  - Haemodynamic instability [Unknown]
  - Swelling [Not Recovered/Not Resolved]
  - Hypotension [Unknown]
  - Hospitalisation [Unknown]
  - Hypopnoea [Unknown]
  - Dyspepsia [Unknown]
  - Abdominal distension [Unknown]
  - Fatigue [Unknown]
  - Syncope [Unknown]
  - Paracentesis [Unknown]
  - Hepatic cirrhosis [Unknown]
  - Headache [Unknown]

NARRATIVE: CASE EVENT DATE: 201604
